FAERS Safety Report 9813646 (Version 1)
Quarter: 2014Q1

REPORT INFORMATION
  Report Type: Spontaneous
  Country: US (occurrence: None)
  Receive Date: 20140109
  Receipt Date: 20140109
  Transmission Date: 20141002
  Serious: Yes (Other)
  Sender: FDA-Public Use
  Company Number: None

PATIENT
  Age: 78 Year
  Sex: Female
  Weight: 51.71 kg

DRUGS (1)
  1. CREST PRO HEALTH [Suspect]
     Dates: start: 201308

REACTIONS (1)
  - Unevaluable event [None]
